FAERS Safety Report 4347630-3 (Version None)
Quarter: 2004Q2

REPORT INFORMATION
  Report Type: 
  Country: None (occurrence: None)
  Receive Date: 20040422
  Receipt Date: 20040413
  Transmission Date: 20050107
  Serious: Yes (Death, Other)
  Sender: FDA-Public Use
  Company Number: 2004025210

PATIENT
  Age: 46 Year
  Sex: Male

DRUGS (7)
  1. TIKOSYN [Suspect]
     Indication: ATRIAL FIBRILLATION
     Dosage: 1000 MCG (BID), ORAL
     Route: 048
     Dates: start: 20020319, end: 20020325
  2. DOXAZOSIN MESILATE (DOXAZOSIN [Concomitant]
  3. AMLODIPINE BESYLATE [Concomitant]
  4. DIGOXIN [Concomitant]
  5. POTASSIUM (POTASSIUM) [Concomitant]
  6. WARFARIN SODIUM [Concomitant]
  7. AMIODARONE HCL [Concomitant]

REACTIONS (9)
  - ATRIAL FIBRILLATION [None]
  - BLOOD POTASSIUM DECREASED [None]
  - CARDIAC FAILURE [None]
  - CARDIOMEGALY [None]
  - ELECTROCARDIOGRAM QT CORRECTED INTERVAL PROLONGED [None]
  - HEADACHE [None]
  - SUDDEN DEATH [None]
  - THROMBOSIS [None]
  - VENTRICULAR EXTRASYSTOLES [None]
